FAERS Safety Report 12466924 (Version 1)
Quarter: 2016Q2

REPORT INFORMATION
  Report Type: Other
  Country: DE (occurrence: DE)
  Receive Date: 20160615
  Receipt Date: 20160615
  Transmission Date: 20160815
  Serious: No
  Sender: FDA-Public Use
  Company Number: DE-LUPIN PHARMACEUTICALS INC.-E2B_00005379

PATIENT
  Sex: Female
  Weight: 65 kg

DRUGS (1)
  1. IRBESARTAN AND HYDROCHLOROTHIAZIDE 150MG/125MG [Suspect]
     Active Substance: HYDROCHLOROTHIAZIDE\IRBESARTAN
     Indication: HYPERTENSION
     Route: 048

REACTIONS (2)
  - Dyspnoea exertional [Unknown]
  - Oropharyngeal swelling [Unknown]
